FAERS Safety Report 8349420-3 (Version None)
Quarter: 2012Q2

REPORT INFORMATION
  Report Type: 
  Country: None (occurrence: None)
  Receive Date: 20120510
  Receipt Date: 20120507
  Transmission Date: 20120825
  Serious: Yes (Hospitalization)
  Sender: FDA-Public Use
  Company Number: US-AMGEN-USASP2011040279

PATIENT
  Age: 71 Year
  Sex: Female

DRUGS (2)
  1. ENBREL [Suspect]
     Indication: PSORIASIS
     Dosage: 50 MG, QWK
     Dates: start: 19980101
  2. ENBREL [Suspect]
     Indication: RHEUMATOID ARTHRITIS
     Dosage: 50 MG, QWK
     Dates: start: 19980101

REACTIONS (18)
  - FATIGUE [None]
  - HEADACHE [None]
  - AMNESIA [None]
  - RHEUMATOID ARTHRITIS [None]
  - STRESS [None]
  - FEELING HOT [None]
  - INJECTION SITE HAEMATOMA [None]
  - CONVULSION [None]
  - INJECTION SITE HAEMORRHAGE [None]
  - ARTHRALGIA [None]
  - INJECTION SITE PAIN [None]
  - THROAT TIGHTNESS [None]
  - GAIT DISTURBANCE [None]
  - MIGRAINE [None]
  - LIGAMENT INJURY [None]
  - DERMATITIS CONTACT [None]
  - VISUAL IMPAIRMENT [None]
  - LIGAMENT SPRAIN [None]
